FAERS Safety Report 9425321 (Version 1)
Quarter: 2013Q3

REPORT INFORMATION
  Report Type: Spontaneous
  Country: DE (occurrence: AT)
  Receive Date: 20130729
  Receipt Date: 20130729
  Transmission Date: 20140515
  Serious: Yes (Other)
  Sender: FDA-Public Use
  Company Number: DE-ALLERGAN-1311063US

PATIENT
  Sex: Male

DRUGS (1)
  1. GANFORT? 300 MIKROGRAMM/ML + 5 MG/ML AUGENTROPFEN [Suspect]
     Indication: GLAUCOMA
     Dosage: UNK
     Route: 047
     Dates: start: 2013, end: 2013

REACTIONS (1)
  - Angina pectoris [Recovered/Resolved]
